FAERS Safety Report 20506112 (Version 1)
Quarter: 2022Q1

REPORT INFORMATION
  Report Type: Spontaneous
  Country: US (occurrence: None)
  Receive Date: 20220222
  Receipt Date: 20220222
  Transmission Date: 20220424
  Serious: Yes (Hospitalization)
  Sender: FDA-Public Use
  Company Number: None

PATIENT
  Age: 45 Year
  Sex: Female

DRUGS (1)
  1. OPSUMIT [Suspect]
     Active Substance: MACITENTAN
     Indication: Pulmonary arterial hypertension
     Dosage: FREQUENCY : DAILY;?
     Route: 048
     Dates: start: 20211019

REACTIONS (5)
  - Right ventricular failure [None]
  - Anaemia [None]
  - Hyponatraemia [None]
  - Thrombocytopenia [None]
  - Polyuria [None]

NARRATIVE: CASE EVENT DATE: 20220127
